FAERS Safety Report 4331074-4 (Version None)
Quarter: 2004Q2

REPORT INFORMATION
  Report Type: 
  Country: None (occurrence: None)
  Receive Date: 20040405
  Receipt Date: 20040321
  Transmission Date: 20050107
  Serious: Yes (Life-Threatening, Hospitalization, Other)
  Sender: FDA-Public Use
  Company Number: PHNU2004DE01318

PATIENT
  Sex: Male

DRUGS (1)
  1. CLOZARIL [Suspect]
     Indication: SCHIZOPHRENIA
     Dosage: BETWEEN 100 - 300 MG/DAY
     Route: 048
     Dates: start: 19740101, end: 20030101

REACTIONS (13)
  - CARDIAC ARREST [None]
  - CARDIOPULMONARY FAILURE [None]
  - DIABETES MELLITUS [None]
  - DIABETIC COMPLICATION [None]
  - DRUG WITHDRAWAL SYNDROME [None]
  - INSOMNIA [None]
  - MONOPARESIS [None]
  - OBESITY [None]
  - OEDEMA [None]
  - PULMONARY EMBOLISM [None]
  - RESUSCITATION [None]
  - SCHIZOPHRENIA [None]
  - TACHYCARDIA [None]
